FAERS Safety Report 16677289 (Version 1)
Quarter: 2019Q3

REPORT INFORMATION
  Report Type: Spontaneous
  Country: US (occurrence: US)
  Receive Date: 20190621
  Receipt Date: 20190621
  Transmission Date: 20191004
  Serious: No
  Sender: FDA-Public Use
  Company Number: None

PATIENT
  Age: 68 Year
  Sex: Female
  Weight: 114.31 kg

DRUGS (1)
  1. ENBREL [Suspect]
     Active Substance: ETANERCEPT
     Indication: PSORIATIC ARTHROPATHY
     Dosage: FREQUENCY: ONCE WEEKLY USING THE AUTO TOUCH DEVICE AS DIRECTED.
     Route: 058
     Dates: start: 201903

REACTIONS (3)
  - Viral infection [None]
  - Vomiting [None]
  - Diarrhoea [None]
